FAERS Safety Report 9275754 (Version 1)
Quarter: 2013Q1

REPORT INFORMATION
  Report Type: Spontaneous
  Country: US (occurrence: None)
  Receive Date: 20130318
  Receipt Date: 20130318
  Transmission Date: 20140127
  Serious: Yes (Other)
  Sender: FDA-Public Use
  Company Number: 2012-066

PATIENT
  Age: 2 Year
  Sex: Male

DRUGS (1)
  1. POLYVITAMIN DROPS WITH IRON [Suspect]

REACTIONS (2)
  - Dysarthria [None]
  - Product quality issue [None]
